FAERS Safety Report 8499345-8 (Version None)
Quarter: 2012Q2

REPORT INFORMATION
  Report Type: 
  Country: None (occurrence: None)
  Receive Date: 20120405
  Receipt Date: 20110105
  Transmission Date: 20120825
  Serious: Yes (Other)
  Sender: FDA-Public Use
  Company Number: PHHY2011US02117

PATIENT
  Age: 64 Year
  Sex: Male

DRUGS (7)
  1. MULTIVITAMIN [Concomitant]
  2. LUPRON [Concomitant]
  3. OMEPRAZOLE [Concomitant]
  4. RECLAST [Suspect]
     Dosage: 5 MG, ONCE YEARLY, INFUSION
     Dates: start: 20100927
  5. CALCIUM PLUS D [Concomitant]
  6. ASPIRIN [Concomitant]
  7. SIMVASTATIN [Concomitant]

REACTIONS (14)
  - FEELING HOT [None]
  - PARAESTHESIA [None]
  - MYALGIA [None]
  - PAIN IN EXTREMITY [None]
  - ARTHRALGIA [None]
  - JOINT CREPITATION [None]
  - MUSCULOSKELETAL STIFFNESS [None]
  - DIARRHOEA [None]
  - INSOMNIA [None]
  - DRUG HYPERSENSITIVITY [None]
  - MUSCULOSKELETAL DISCOMFORT [None]
  - OEDEMA PERIPHERAL [None]
  - ARTHRITIS [None]
  - GAIT DISTURBANCE [None]
